FAERS Safety Report 10431567 (Version 1)
Quarter: 2014Q3

REPORT INFORMATION
  Report Type: Spontaneous
  Country: US (occurrence: None)
  Receive Date: 20140903
  Receipt Date: 20140903
  Transmission Date: 20150326
  Serious: Yes (Life-Threatening, Hospitalization)
  Sender: FDA-Public Use
  Company Number: IMP_07885_2014

PATIENT
  Age: 85 Year
  Sex: Male

DRUGS (5)
  1. COUMADINE [Concomitant]
     Active Substance: WARFARIN SODIUM
  2. DIGOXIN. [Suspect]
     Active Substance: DIGOXIN
     Indication: ACUTE MYOCARDIAL INFARCTION
     Dosage: DF
  3. FUROSEMIDE. [Suspect]
     Active Substance: FUROSEMIDE
     Indication: PRODUCT USED FOR UNKNOWN INDICATION
     Route: 048
  4. METOLAZONE. [Suspect]
     Active Substance: METOLAZONE
     Indication: CARDIAC FAILURE
     Route: 048
  5. ENALAPRIL [Concomitant]
     Active Substance: ENALAPRIL

REACTIONS (7)
  - Cardioactive drug level increased [None]
  - Pleural effusion [None]
  - Cardiomegaly [None]
  - Ventricular tachycardia [None]
  - Cardiac murmur [None]
  - Toxicity to various agents [None]
  - Heart rate irregular [None]
